FAERS Safety Report 5521815-2 (Version None)
Quarter: 2007Q4

REPORT INFORMATION
  Report Type: 
  Country: None (occurrence: None)
  Receive Date: 20071120
  Receipt Date: 20071115
  Transmission Date: 20080405
  Serious: Yes (Hospitalization, Other)
  Sender: FDA-Public Use
  Company Number: GB-WYE-G00626607

PATIENT
  Sex: Male

DRUGS (1)
  1. EFFEXOR XR [Suspect]
     Dosage: 75 MG FREQUENCY UNKNOWN

REACTIONS (4)
  - FALL [None]
  - HYPONATRAEMIA [None]
  - MOBILITY DECREASED [None]
  - PARKINSON'S DISEASE [None]
